FAERS Safety Report 8386998-8 (Version None)
Quarter: 2012Q2

REPORT INFORMATION
  Report Type: 
  Country: None (occurrence: None)
  Receive Date: 20120523
  Receipt Date: 20120507
  Transmission Date: 20120825
  Serious: Yes (Hospitalization)
  Sender: FDA-Public Use
  Company Number: ALLO20120008

PATIENT
  Age: 88 Year
  Sex: Male

DRUGS (4)
  1. FUROSEMIDE [Concomitant]
  2. SPIRONOLACTONE [Concomitant]
  3. AMLODIPINE BESILATE (AMLODIPINE BESILATE)(AMLODIPINE BESILATE) [Concomitant]
  4. ALLOPURINOL [Suspect]
     Indication: HYPERURICAEMIA

REACTIONS (3)
  - DRUG RASH WITH EOSINOPHILIA AND SYSTEMIC SYMPTOMS [None]
  - GENITAL ULCERATION [None]
  - HERPES SIMPLEX [None]
